FAERS Safety Report 22121129 (Version 3)
Quarter: 2023Q2

REPORT INFORMATION
  Report Type: Spontaneous
  Country: PL (occurrence: PL)
  Receive Date: 20230321
  Receipt Date: 20230510
  Transmission Date: 20230722
  Serious: Yes (Death)
  Sender: FDA-Public Use
  Company Number: HR-Merck Healthcare KGaA-9389166

PATIENT
  Age: 67 Year
  Sex: Male

DRUGS (2)
  1. ERBITUX [Suspect]
     Active Substance: CETUXIMAB
     Indication: Product used for unknown indication
     Dosage: 800 MG/M2, UNK
     Route: 065
  2. ERBITUX [Suspect]
     Active Substance: CETUXIMAB
     Dosage: 800 MG/M2, UNK
     Route: 065

REACTIONS (3)
  - Myocardial infarction [Fatal]
  - Cardiac arrest [Fatal]
  - Off label use [Unknown]
